FAERS Safety Report 20699880 (Version 1)
Quarter: 2022Q2

REPORT INFORMATION
  Report Type: Spontaneous
  Country: US (occurrence: None)
  Receive Date: 20220409
  Receipt Date: 20220409
  Transmission Date: 20220720
  Serious: Yes (Disabling, Other)
  Sender: FDA-Public Use
  Company Number: None

PATIENT
  Age: 42 Year
  Sex: Female
  Weight: 96.75 kg

DRUGS (4)
  1. ATIVAN [Suspect]
     Active Substance: LORAZEPAM
     Indication: Insomnia
     Dosage: OTHER QUANTITY : 30 TABLET(S);?FREQUENCY : AT BEDTIME;?
     Route: 048
     Dates: start: 20220301, end: 20220408
  2. ATIVAN [Suspect]
     Active Substance: LORAZEPAM
     Indication: Anxiety
  3. Lorazapam, 0.5mg [Concomitant]
  4. PROMETHAZINE [Concomitant]
     Active Substance: PROMETHAZINE HYDROCHLORIDE

REACTIONS (3)
  - Reaction to excipient [None]
  - Product substitution issue [None]
  - Product advertising issue [None]

NARRATIVE: CASE EVENT DATE: 20220315
